FAERS Safety Report 8795347 (Version 2)
Quarter: 2012Q4

REPORT INFORMATION
  Report Type: 
  Country: US (occurrence: US)
  Receive Date: 20120917
  Receipt Date: 20121122
  Transmission Date: 20130627
  Serious: Yes (Death, Other)
  Sender: FDA-Public Use
  Company Number: US-ROCHE-1128487

PATIENT
  Age: 29 Year
  Sex: Male

DRUGS (2)
  1. AVASTIN [Suspect]
     Indication: BRAIN NEOPLASM MALIGNANT
     Route: 065
     Dates: start: 20070222, end: 20070628
  2. AVASTIN [Suspect]
     Indication: GLIOMA

REACTIONS (2)
  - Neoplasm progression [Fatal]
  - Hemiplegia [Unknown]
